FAERS Safety Report 9355133 (Version 1)
Quarter: 2013Q2

REPORT INFORMATION
  Report Type: Spontaneous
  Country: US (occurrence: US)
  Receive Date: 20130619
  Receipt Date: 20130619
  Transmission Date: 20140414
  Serious: No
  Sender: FDA-Public Use
  Company Number: US-US-EMD SERONO, INC.-7008656

PATIENT
  Age: 31 Year
  Sex: Female

DRUGS (3)
  1. REBIF [Suspect]
     Indication: PRODUCT USED FOR UNKNOWN INDICATION
     Route: 058
     Dates: start: 20100305, end: 20100607
  2. REBIF [Suspect]
     Route: 058
     Dates: start: 20100624, end: 20100624
  3. REBIF [Suspect]
     Route: 058
     Dates: start: 201006

REACTIONS (8)
  - Cystitis [Unknown]
  - Genital herpes [Not Recovered/Not Resolved]
  - Vaginal infection [Unknown]
  - Panic attack [Unknown]
  - Abdominal pain upper [Unknown]
  - Musculoskeletal stiffness [Recovered/Resolved]
  - Headache [Recovered/Resolved]
  - Influenza like illness [Recovered/Resolved]
